FAERS Safety Report 23668102 (Version 1)
Quarter: 2024Q1

REPORT INFORMATION
  Report Type: Spontaneous
  Country: US (occurrence: US)
  Receive Date: 20240325
  Receipt Date: 20240325
  Transmission Date: 20240410
  Serious: Yes (Other)
  Sender: FDA-Public Use
  Company Number: US-MYLANLABS-2024M1026843

PATIENT
  Sex: Female
  Weight: 63.5 kg

DRUGS (1)
  1. ZOLOFT [Suspect]
     Active Substance: SERTRALINE HYDROCHLORIDE
     Indication: Depression
     Dosage: UNK
     Route: 065

REACTIONS (7)
  - Serotonin syndrome [Recovering/Resolving]
  - Dumping syndrome [Unknown]
  - Gastrointestinal motility disorder [Unknown]
  - General physical health deterioration [Unknown]
  - Muscle rigidity [Unknown]
  - Headache [Unknown]
  - Diarrhoea [Unknown]
